FAERS Safety Report 26178835 (Version 1)
Quarter: 2025Q4

REPORT INFORMATION
  Report Type: Spontaneous
  Country: US (occurrence: US)
  Receive Date: 20251219
  Receipt Date: 20251219
  Transmission Date: 20260117
  Serious: No
  Sender: KARYOPHARM THERAPEUTICS
  Company Number: US-KARYOPHARM-2025KPT101077

PATIENT

DRUGS (5)
  1. SELINEXOR [Suspect]
     Active Substance: SELINEXOR
     Indication: Plasma cell myeloma
     Dosage: 60 MG WEEKLY
     Route: 048
  2. ACYCLOVIR [Concomitant]
     Active Substance: ACYCLOVIR
  3. BACTRIM DS [Concomitant]
     Active Substance: SULFAMETHOXAZOLE\TRIMETHOPRIM
  4. OMEPRAZOLE [Concomitant]
     Active Substance: OMEPRAZOLE
  5. POMALYST [Concomitant]
     Active Substance: POMALIDOMIDE

REACTIONS (3)
  - Anxiety [Unknown]
  - Nausea [Unknown]
  - Decreased appetite [Unknown]
